FAERS Safety Report 24641032 (Version 1)
Quarter: 2024Q4

REPORT INFORMATION
  Report Type: Spontaneous
  Country: US (occurrence: US)
  Receive Date: 20241120
  Receipt Date: 20241120
  Transmission Date: 20250114
  Serious: No
  Sender: AUROBINDO
  Company Number: US-AUROBINDO-AUR-APL-2024-003773

PATIENT
  Age: 62 Year
  Sex: Male
  Weight: 84.3 kg

DRUGS (2)
  1. PANTOPRAZOLE SODIUM [Suspect]
     Active Substance: PANTOPRAZOLE SODIUM
     Indication: Product used for unknown indication
     Dosage: UNK ( 3 DAYS A WEEK)
     Route: 048
     Dates: start: 202005
  2. DOCUSATE SODIUM [Concomitant]
     Active Substance: DOCUSATE SODIUM
     Indication: Faeces hard
     Dosage: 100 MILLIGRAM, DAILY
     Route: 065

REACTIONS (5)
  - Blood pressure increased [Recovered/Resolved]
  - Gastrooesophageal reflux disease [Unknown]
  - Condition aggravated [Unknown]
  - Palpitations [Recovered/Resolved]
  - Therapy change [Unknown]
